FAERS Safety Report 5923035-6 (Version None)
Quarter: 2008Q4

REPORT INFORMATION
  Report Type: 
  Country: None (occurrence: None)
  Receive Date: 20081018
  Receipt Date: 20081007
  Transmission Date: 20090506
  Serious: Yes (Hospitalization, Other)
  Sender: FDA-Public Use
  Company Number: US-PFIZER INC-2008081523

PATIENT
  Sex: Female
  Weight: 74.8 kg

DRUGS (3)
  1. SUTENT [Suspect]
     Indication: METASTATIC RENAL CELL CARCINOMA
     Dates: start: 20080917, end: 20080928
  2. ATORVASTATIN CALCIUM [Concomitant]
  3. ATENOLOL [Concomitant]

REACTIONS (11)
  - ABASIA [None]
  - ASTHENIA [None]
  - CEREBROVASCULAR ACCIDENT [None]
  - DIARRHOEA [None]
  - DIZZINESS [None]
  - FALL [None]
  - HEADACHE [None]
  - HYPERTENSION [None]
  - MENTAL IMPAIRMENT [None]
  - VISION BLURRED [None]
  - VOMITING [None]
